FAERS Safety Report 5909023-4 (Version None)
Quarter: 2008Q4

REPORT INFORMATION
  Report Type: 
  Country: None (occurrence: None)
  Receive Date: 20081006
  Receipt Date: 20080922
  Transmission Date: 20090506
  Serious: Yes (Hospitalization)
  Sender: FDA-Public Use
  Company Number: US-ROCHE-563272

PATIENT
  Sex: Female
  Weight: 61 kg

DRUGS (11)
  1. VALGANCICLOVIR HCL [Suspect]
     Dosage: VALGANCICLOVIR RECEIVED FOR 100 DAY PER PROTOCOL
     Route: 048
     Dates: start: 20061025, end: 20070321
  2. VALGANCICLOVIR HCL [Suspect]
     Dosage: DRUG PERMANENTLY DISCONTINUED.
     Route: 048
     Dates: end: 20070321
  3. PROGRAF [Concomitant]
     Dates: start: 20070213
  4. MULTI-VITAMIN [Concomitant]
     Dates: start: 20061027
  5. PROTONIX [Concomitant]
     Dates: start: 20061027
  6. MAGNESIUM OXIDE [Concomitant]
     Dates: start: 20061027
  7. NORVASC [Concomitant]
     Dates: start: 20061116
  8. PREDNISONE TAB [Concomitant]
     Dates: start: 20061116
  9. LISINOPRIL [Concomitant]
     Dates: start: 20070103
  10. COREG [Concomitant]
     Dates: start: 20070129
  11. MYFORTIC [Concomitant]
     Dates: start: 20061027

REACTIONS (1)
  - CYTOMEGALOVIRUS SYNDROME [None]
